FAERS Safety Report 8975620 (Version 1)
Quarter: 2012Q4

REPORT INFORMATION
  Report Type: 
  Country: DK (occurrence: GB)
  Receive Date: 20121219
  Receipt Date: 20121219
  Transmission Date: 20130627
  Serious: Yes (Other)
  Sender: FDA-Public Use
  Company Number: GB-FRI-1000041157

PATIENT
  Age: 41 Year
  Sex: Female
  Weight: 62 kg

DRUGS (1)
  1. CITALOPRAM [Suspect]
     Indication: POSTPARTUM DEPRESSION
     Dosage: 20 mg
     Route: 048
     Dates: end: 200709

REACTIONS (8)
  - Disturbance in attention [Recovering/Resolving]
  - Confusional state [Recovering/Resolving]
  - Amnesia [Recovering/Resolving]
  - Feeling abnormal [Recovering/Resolving]
  - Palpitations [Recovering/Resolving]
  - Motion sickness [Recovering/Resolving]
  - Tremor [Recovering/Resolving]
  - Withdrawal syndrome [Recovering/Resolving]
